FAERS Safety Report 18480986 (Version 1)
Quarter: 2020Q4

REPORT INFORMATION
  Report Type: Spontaneous
  Country: US (occurrence: US)
  Receive Date: 20201109
  Receipt Date: 20201109
  Transmission Date: 20210114
  Serious: No
  Sender: FDA-Public Use
  Company Number: US-CELGENEUS-USA-20201101578

PATIENT
  Age: 64 Year
  Sex: Female

DRUGS (4)
  1. POMALYST [Suspect]
     Active Substance: POMALIDOMIDE
     Dosage: 1 MILLIGRAM
     Route: 048
     Dates: start: 202004, end: 20200930
  2. POMALYST [Suspect]
     Active Substance: POMALIDOMIDE
     Indication: PLASMA CELL MYELOMA
     Dosage: 4 MILLIGRAM
     Route: 048
     Dates: start: 201812
  3. POMALYST [Suspect]
     Active Substance: POMALIDOMIDE
     Dosage: 10MG-3MG
     Route: 048
     Dates: start: 201901
  4. POMALYST [Suspect]
     Active Substance: POMALIDOMIDE
     Dosage: 3MG-2MG
     Route: 048
     Dates: start: 20190513

REACTIONS (1)
  - Plasma cell myeloma [Unknown]

NARRATIVE: CASE EVENT DATE: 202009
